FAERS Safety Report 8013281-2 (Version None)
Quarter: 2011Q4

REPORT INFORMATION
  Report Type: 
  Country: None (occurrence: None)
  Receive Date: 20111223
  Receipt Date: 20111220
  Transmission Date: 20120403
  Serious: Yes (Other)
  Sender: FDA-Public Use
  Company Number: 2011IP000202

PATIENT
  Age: 82 Year
  Sex: Female

DRUGS (3)
  1. VIGAMOX [Suspect]
     Indication: CATARACT OPERATION
     Dosage: 1 GTT;TID;OPH
     Route: 047
     Dates: start: 20110901
  2. PREDNISOLONE ACETATE OPHTHALMIC SUSPENSION/DROPS [Suspect]
     Indication: CATARACT OPERATION
     Dosage: 1 GTT;TID;OPH
     Route: 047
     Dates: start: 20110901
  3. BROMDAY [Suspect]
     Indication: CATARACT OPERATION
     Dosage: 1 GTT;QD;OPH
     Route: 047
     Dates: start: 20110901

REACTIONS (4)
  - EYE PAIN [None]
  - BLINDNESS [None]
  - ENDOPHTHALMITIS [None]
  - HYPOTONY OF EYE [None]
